FAERS Safety Report 6866128-1 (Version None)
Quarter: 2010Q3

REPORT INFORMATION
  Report Type: 
  Country: None (occurrence: None)
  Receive Date: 20100722
  Receipt Date: 20100713
  Transmission Date: 20110219
  Serious: Yes (Hospitalization)
  Sender: FDA-Public Use
  Company Number: AR-ASTRAZENECA-2010SE32561

PATIENT
  Age: 42 Month
  Sex: Male

DRUGS (1)
  1. FREVIA [Suspect]
     Indication: ASTHMA
     Dosage: TWO PUFFS
     Route: 055
     Dates: start: 20100201, end: 20100711

REACTIONS (2)
  - ASTHMA [None]
  - INCORRECT DOSE ADMINISTERED [None]
